FAERS Safety Report 20254038 (Version 1)
Quarter: 2021Q4

REPORT INFORMATION
  Report Type: Spontaneous
  Country: US (occurrence: US)
  Receive Date: 20211230
  Receipt Date: 20211230
  Transmission Date: 20220303
  Serious: Yes (Other)
  Sender: FDA-Public Use
  Company Number: US-drreddys-SPO/USA/21/0145189

PATIENT
  Age: 17 Year
  Sex: Male

DRUGS (1)
  1. ACCUTANE [Suspect]
     Active Substance: ISOTRETINOIN
     Indication: Product used for unknown indication
     Dosage: RMA ISSUE DATE: 13 SEPTEMBER 2021 02:04:54 PM, 14 OCTOBER 2021 10:54:44 AM AND 19 NOVEMBER 2021 05:2

REACTIONS (2)
  - Mood altered [Unknown]
  - Headache [Unknown]
